FAERS Safety Report 5141270-4 (Version None)
Quarter: 2006Q4

REPORT INFORMATION
  Report Type: 
  Country: None (occurrence: None)
  Receive Date: 20061101
  Receipt Date: 20061019
  Transmission Date: 20070319
  Serious: Yes (Other)
  Sender: FDA-Public Use
  Company Number: PHBS2006PL16451

PATIENT
  Age: 31 Year
  Sex: Male

DRUGS (4)
  1. VERAPAMIL [Suspect]
     Route: 065
  2. AMLODIPINE [Suspect]
     Route: 065
  3. CORTICOSTEROIDS [Concomitant]
     Route: 065
  4. CYCLOSPORINE [Suspect]
     Indication: RENAL TRANSPLANT
     Route: 065

REACTIONS (2)
  - GINGIVAL HYPERPLASIA [None]
  - GINGIVITIS [None]
